FAERS Safety Report 7766859-5 (Version None)
Quarter: 2011Q3

REPORT INFORMATION
  Report Type: 
  Country: None (occurrence: None)
  Receive Date: 20110922
  Receipt Date: 20110919
  Transmission Date: 20111222
  Serious: No
  Sender: FDA-Public Use
  Company Number: US-PFIZER INC-2011221745

PATIENT
  Sex: Male

DRUGS (2)
  1. LYRICA [Suspect]
     Indication: DIABETIC NEUROPATHY
     Dosage: 150 MG, 1X/DAY
     Dates: start: 20110911, end: 20110918
  2. LAMICTAL [Suspect]

REACTIONS (3)
  - CONFUSIONAL STATE [None]
  - VISION BLURRED [None]
  - HEADACHE [None]
